FAERS Safety Report 14947993 (Version 3)
Quarter: 2018Q2

REPORT INFORMATION
  Report Type: Spontaneous
  Country: US (occurrence: US)
  Receive Date: 20180529
  Receipt Date: 20180621
  Transmission Date: 20180711
  Serious: Yes (Hospitalization)
  Sender: FDA-Public Use
  Company Number: US-OTSUKA-2018_013465

PATIENT
  Age: 25 Year
  Sex: Male

DRUGS (1)
  1. ABILIFY MAINTENA [Suspect]
     Active Substance: ARIPIPRAZOLE
     Indication: BIPOLAR DISORDER
     Dosage: 400 MG, QM
     Route: 065
     Dates: start: 20180131

REACTIONS (2)
  - Restlessness [Unknown]
  - Emotional distress [Unknown]

NARRATIVE: CASE EVENT DATE: 20180519
